FAERS Safety Report 23026641 (Version 1)
Quarter: 2023Q4

REPORT INFORMATION
  Report Type: Spontaneous
  Country: MT (occurrence: MT)
  Receive Date: 20231004
  Receipt Date: 20231004
  Transmission Date: 20240110
  Serious: Yes (Other)
  Sender: FDA-Public Use
  Company Number: MT-009507513-2309MLT009613

PATIENT
  Age: 54 Year
  Sex: Female

DRUGS (4)
  1. PEMBROLIZUMAB [Suspect]
     Active Substance: PEMBROLIZUMAB
     Indication: Triple negative breast cancer
     Dosage: UNK, Q3W
     Dates: start: 201912, end: 202001
  2. PEMBROLIZUMAB [Suspect]
     Active Substance: PEMBROLIZUMAB
     Dosage: 200 MILLIGRAM, Q3W
     Dates: start: 202007, end: 202104
  3. CARBOPLATIN [Suspect]
     Active Substance: CARBOPLATIN
     Indication: Triple negative breast cancer
     Dosage: UNK, QW
     Dates: start: 201912, end: 2020
  4. PACLITAXEL [Suspect]
     Active Substance: PACLITAXEL
     Indication: Triple negative breast cancer
     Dosage: UNK, QW
     Dates: start: 201912, end: 2020

REACTIONS (8)
  - Scleroderma [Recovering/Resolving]
  - Lethargy [Unknown]
  - Nausea [Unknown]
  - Vomiting [Unknown]
  - Diarrhoea [Unknown]
  - Headache [Unknown]
  - Dizziness [Unknown]
  - Paraesthesia [Unknown]

NARRATIVE: CASE EVENT DATE: 20210701
